FAERS Safety Report 4614959-0 (Version None)
Quarter: 2005Q1

REPORT INFORMATION
  Report Type: 
  Country: None (occurrence: None)
  Receive Date: 20050322
  Receipt Date: 20050311
  Transmission Date: 20050727
  Serious: Yes (Hospitalization)
  Sender: FDA-Public Use
  Company Number: FR-ROCHE-398563

PATIENT
  Age: 47 Year
  Sex: Male
  Weight: 110 kg

DRUGS (4)
  1. PEGASYS [Suspect]
     Indication: HEPATITIS C
     Route: 058
  2. LOPRIL [Concomitant]
     Indication: HYPERTENSION
     Route: 065
  3. CAPTEA [Concomitant]
     Indication: HYPERTENSION
     Route: 065
  4. REBETOL [Concomitant]
     Indication: HEPATITIS C
     Route: 048

REACTIONS (2)
  - PHLEBITIS [None]
  - PULMONARY EMBOLISM [None]
